FAERS Safety Report 9207241 (Version 1)
Quarter: 2013Q2

REPORT INFORMATION
  Report Type: Report from Study
  Country: US (occurrence: US)
  Receive Date: 20130403
  Receipt Date: 20130403
  Transmission Date: 20140414
  Serious: Yes (Other)
  Sender: FDA-Public Use
  Company Number: US-BAYER-2013-040748

PATIENT
  Sex: Female

DRUGS (1)
  1. BETASERON [Suspect]
     Indication: RELAPSING-REMITTING MULTIPLE SCLEROSIS
     Dosage: 8 MIU, QOD
     Route: 058
     Dates: start: 19961121

REACTIONS (4)
  - Impaired gastric emptying [Not Recovered/Not Resolved]
  - Sciatica [Not Recovered/Not Resolved]
  - Aphagia [Recovered/Resolved]
  - Weight decreased [Recovered/Resolved]
